FAERS Safety Report 6299238-0 (Version None)
Quarter: 2009Q3

REPORT INFORMATION
  Report Type: 
  Country: None (occurrence: None)
  Receive Date: 20090806
  Receipt Date: 20090728
  Transmission Date: 20100115
  Serious: Yes (Hospitalization)
  Sender: FDA-Public Use
  Company Number: DE-CELGENEUS-062-21880-09072088

PATIENT

DRUGS (2)
  1. REVLIMID [Suspect]
     Dosage: INSTEAD OF 50MG
     Route: 048
     Dates: start: 20090708, end: 20090708
  2. REVLIMID [Suspect]
     Route: 048
     Dates: start: 20090714

REACTIONS (3)
  - DRUG ERUPTION [None]
  - MEDICATION ERROR [None]
  - PRURITUS GENERALISED [None]
